FAERS Safety Report 11474310 (Version 1)
Quarter: 2015Q3

REPORT INFORMATION
  Report Type: Spontaneous
  Country: US (occurrence: None)
  Receive Date: 20150902
  Receipt Date: 20150902
  Transmission Date: 20151125
  Serious: Yes (Hospitalization)
  Sender: FDA-Public Use
  Company Number: A-US2014-104175

PATIENT
  Age: 8 Year
  Sex: Female

DRUGS (4)
  1. COUMADIN [Concomitant]
     Active Substance: WARFARIN SODIUM
  2. REVATIO (SILDENAFIL CITRATE) [Concomitant]
  3. VELETRI [Suspect]
     Active Substance: EPOPROSTENOL
     Indication: PULMONARY ARTERIAL HYPERTENSION
     Dosage: 20 NG/KG, PER MIN, INTRAVENOUS
     Route: 042
     Dates: start: 20140404
  4. LETAIRIS [Concomitant]
     Active Substance: AMBRISENTAN

REACTIONS (10)
  - Catheter site discolouration [None]
  - Catheter site discharge [None]
  - Catheter site erythema [None]
  - Headache [None]
  - Catheter site swelling [None]
  - Catheter site cellulitis [None]
  - Pseudomonas test positive [None]
  - Catheter site infection [None]
  - Catheter site pain [None]
  - Catheter culture positive [None]

NARRATIVE: CASE EVENT DATE: 20140814
